FAERS Safety Report 8539965-5 (Version None)
Quarter: 2012Q3

REPORT INFORMATION
  Report Type: 
  Country: None (occurrence: None)
  Receive Date: 20120726
  Receipt Date: 20120725
  Transmission Date: 20120928
  Serious: Yes (Hospitalization)
  Sender: FDA-Public Use
  Company Number: GXKR2012DE002391

PATIENT
  Sex: Female

DRUGS (2)
  1. CLINDAMYCIN [Suspect]
     Dosage: 300 MG, BID
     Route: 048
     Dates: start: 20110714, end: 20110714
  2. CLINDAMYCIN [Suspect]
     Indication: TOOTH ABSCESS
     Dosage: 300 MG, QID
     Route: 048
     Dates: start: 20120715, end: 20120721

REACTIONS (7)
  - CHEST PAIN [None]
  - GASTROENTERITIS [None]
  - PYREXIA [None]
  - MOBILITY DECREASED [None]
  - ARTHRITIS [None]
  - DIARRHOEA [None]
  - MUSCULOSKELETAL PAIN [None]
